FAERS Safety Report 10239340 (Version 1)
Quarter: 2014Q2

REPORT INFORMATION
  Report Type: Spontaneous
  Country: CL (occurrence: CL)
  Receive Date: 20140616
  Receipt Date: 20140616
  Transmission Date: 20141212
  Serious: Yes (Hospitalization)
  Sender: FDA-Public Use
  Company Number: CL-PFIZER INC-2014160092

PATIENT
  Sex: Male

DRUGS (5)
  1. ALTRULINE [Suspect]
     Dosage: UNK
     Dates: start: 2013
  2. OMEPRAZOL [Concomitant]
     Dosage: UNK
  3. AMIODARONE [Concomitant]
     Dosage: UNK
  4. ASPIRIN ^BAYER^ [Concomitant]
     Dosage: UNK
  5. CARVEDILOL [Concomitant]
     Dosage: UNK

REACTIONS (1)
  - Cardiac disorder [Unknown]
